FAERS Safety Report 14162664 (Version 1)
Quarter: 2017Q4

REPORT INFORMATION
  Report Type: Spontaneous
  Country: CN (occurrence: CN)
  Receive Date: 20171106
  Receipt Date: 20171106
  Transmission Date: 20180321
  Serious: Yes (Other)
  Sender: FDA-Public Use
  Company Number: CN-PFIZER INC-2017472496

PATIENT
  Sex: Male

DRUGS (1)
  1. CEFOPERAZONE SODIUM [Suspect]
     Active Substance: CEFOPERAZONE SODIUM
     Dosage: UNK

REACTIONS (3)
  - White blood cell count decreased [Unknown]
  - Bone marrow failure [Unknown]
  - Haemoglobin decreased [Unknown]
